FAERS Safety Report 24879603 (Version 8)
Quarter: 2025Q3

REPORT INFORMATION
  Report Type: Report from Study
  Country: US (occurrence: US)
  Receive Date: 20250123
  Receipt Date: 20250703
  Transmission Date: 20251020
  Serious: Yes (Other)
  Sender: SUNOVION
  Company Number: US-SUMITOMO PHARMA SWITZERLAND GMBH-2025SPA000363

PATIENT

DRUGS (16)
  1. ORGOVYX [Suspect]
     Active Substance: RELUGOLIX
     Indication: Prostate cancer
     Dosage: 120 MG, QD
     Route: 048
     Dates: start: 20241206, end: 20250613
  2. DIETARY SUPPLEMENT [Concomitant]
     Active Substance: DIETARY SUPPLEMENT
     Route: 065
  3. MINERALS\VITAMINS [Concomitant]
     Active Substance: MINERALS\VITAMINS
     Route: 065
  4. Chelated magnesium [Concomitant]
     Route: 065
  5. CALCIUM\MAGNESIUM\VITAMIN D\ZINC [Concomitant]
     Active Substance: CALCIUM\MAGNESIUM\VITAMIN D\ZINC
     Route: 065
  6. FEXOFENADINE [Concomitant]
     Active Substance: FEXOFENADINE HYDROCHLORIDE
     Route: 065
  7. VITAMINS [Concomitant]
     Active Substance: VITAMINS
     Route: 065
  8. PSEUDOEPHEDRINE [Concomitant]
     Active Substance: PSEUDOEPHEDRINE
     Route: 065
  9. SUDAFED [Concomitant]
     Active Substance: PSEUDOEPHEDRINE HYDROCHLORIDE
     Route: 065
  10. MAGNESIUM GLYCINATE [Concomitant]
     Active Substance: MAGNESIUM GLYCINATE
     Route: 065
  11. LATANOPROST [Concomitant]
     Active Substance: LATANOPROST
     Route: 065
  12. ASPIRIN [Concomitant]
     Active Substance: ASPIRIN
     Route: 048
  13. METOPROLOL SUCCINATE [Concomitant]
     Active Substance: METOPROLOL SUCCINATE
     Route: 065
  14. MIDODRINE HYDROCHLORIDE [Concomitant]
     Active Substance: MIDODRINE HYDROCHLORIDE
     Route: 065
  15. ONDANSETRON [Concomitant]
     Active Substance: ONDANSETRON
     Route: 048
  16. ROSUVASTATIN CALCIUM [Concomitant]
     Active Substance: ROSUVASTATIN CALCIUM
     Route: 065

REACTIONS (9)
  - Coronary artery occlusion [Unknown]
  - Electrocardiogram QT prolonged [Unknown]
  - Cardiac disorder [Unknown]
  - Illness [Unknown]
  - Fatigue [Not Recovered/Not Resolved]
  - Feeling hot [Unknown]
  - Flushing [Unknown]
  - Hot flush [Unknown]
  - Incorrect dose administered [Unknown]

NARRATIVE: CASE EVENT DATE: 20250505
